FAERS Safety Report 8763068 (Version 2)
Quarter: 2012Q4

REPORT INFORMATION
  Report Type: Spontaneous
  Country: US (occurrence: None)
  Receive Date: 20120827
  Receipt Date: 20120830
  Transmission Date: 20130627
  Serious: Yes (Hospitalization, Other)
  Sender: FDA-Public Use
  Company Number: 2012AP002529

PATIENT
  Age: 21 Year
  Sex: Female

DRUGS (11)
  1. ALLOPURINOL [Suspect]
     Indication: URIC ACID INCREASED
  2. CIPROFLOXACIN [Suspect]
     Indication: URINARY TRACT INFECTION
  3. MELOXICAM [Suspect]
     Indication: PRODUCT USED FOR UNKNOWN INDICATION
  4. TOBRAMYCIN OPHTHALMIC SOLUTION USP 0.3% [Suspect]
     Indication: PRODUCT USED FOR UNKNOWN INDICATION
     Route: 047
  5. AMOXICILLIN AND CLAVULANATE POTASSIUM TABLETS USP [Suspect]
     Indication: PRODUCT USED FOR UNKNOWN INDICATION
  6. AMIKACIN [Concomitant]
  7. VANCOMYCIN [Concomitant]
  8. PREDNISONE [Concomitant]
  9. HYDROXYCHLOROQUINE [Concomitant]
  10. IMMUNE GLOBULIN HUMAN [Concomitant]
  11. DIPHENHYDRAMINE [Concomitant]

REACTIONS (17)
  - Toxic epidermal necrolysis [None]
  - Vomiting [None]
  - Tachycardia [None]
  - Haemolytic anaemia [None]
  - Blood bicarbonate decreased [None]
  - Systemic lupus erythematosus [None]
  - Urinary tract infection [None]
  - Haemoptysis [None]
  - Productive cough [None]
  - Tachypnoea [None]
  - Pyrexia [None]
  - Rales [None]
  - Mucosal dryness [None]
  - Transaminases increased [None]
  - Acute respiratory distress syndrome [None]
  - Fluid overload [None]
  - Emotional distress [None]
